FAERS Safety Report 11431495 (Version 2)
Quarter: 2015Q4

REPORT INFORMATION
  Report Type: Report from Study
  Country: FR (occurrence: FR)
  Receive Date: 20150828
  Receipt Date: 20151008
  Transmission Date: 20160304
  Serious: Yes (Death)
  Sender: FDA-Public Use
  Company Number: FR-009507513-1507FRA005433

PATIENT
  Age: 51 Year
  Sex: Male
  Weight: 77 kg

DRUGS (6)
  1. VANCOMYCIN [Concomitant]
     Active Substance: VANCOMYCIN
     Indication: CLOSTRIDIUM DIFFICILE INFECTION
     Dosage: 0.5 G, QD
     Route: 048
  2. SOLUPRED [Concomitant]
     Active Substance: PREDNISOLONE
     Indication: HEPATITIS
     Dosage: 20 MG, QD
     Route: 048
     Dates: start: 20150626, end: 20150722
  3. OXYNORM [Concomitant]
     Active Substance: OXYCODONE HYDROCHLORIDE
     Indication: PAIN
     Dosage: 10 MG, QID
     Route: 048
     Dates: start: 20150705, end: 20150722
  4. INEXIUM (ESOMEPRAZOLE SODIUM) [Concomitant]
     Active Substance: ESOMEPRAZOLE SODIUM
     Indication: GASTRIC PH DECREASED
     Dosage: 20 MG, QD
     Dates: start: 20150626, end: 20150722
  5. FIDAXOMICIN [Suspect]
     Active Substance: FIDAXOMICIN
     Indication: CLOSTRIDIUM DIFFICILE INFECTION
     Dosage: 200 MG, BID
     Route: 048
     Dates: start: 20150701, end: 20150708
  6. KEPPRA [Concomitant]
     Active Substance: LEVETIRACETAM
     Indication: SEIZURE
     Dosage: 500 MG, QD
     Route: 048
     Dates: start: 20150626, end: 20150722

REACTIONS (1)
  - Drug ineffective [Fatal]

NARRATIVE: CASE EVENT DATE: 20150708
